FAERS Safety Report 20591577 (Version 2)
Quarter: 2022Q1

REPORT INFORMATION
  Report Type: Spontaneous
  Country: FR (occurrence: FR)
  Receive Date: 20220314
  Receipt Date: 20220318
  Transmission Date: 20220423
  Serious: Yes (Death)
  Sender: FDA-Public Use
  Company Number: None

PATIENT
  Age: 69 Year
  Sex: Male

DRUGS (9)
  1. ATRACURIUM BESYLATE [Suspect]
     Active Substance: ATRACURIUM BESYLATE
     Indication: Sedation
     Dosage: UNK
     Route: 042
     Dates: start: 20220113
  2. NOREPINEPHRINE\NOREPINEPHRINE BITARTRATE [Suspect]
     Active Substance: NOREPINEPHRINE\NOREPINEPHRINE BITARTRATE
     Indication: Sedation
     Dosage: UNK
     Route: 042
     Dates: start: 20220113
  3. LANSOPRAZOLE [Suspect]
     Active Substance: LANSOPRAZOLE
     Indication: Gastrooesophageal reflux disease
     Dosage: UNK
     Dates: start: 20220113
  4. PROPOFOL [Suspect]
     Active Substance: PROPOFOL
     Indication: Sedation
     Dosage: UNK
     Route: 042
     Dates: start: 20220113
  5. CEFEPIME [Suspect]
     Active Substance: CEFEPIME HYDROCHLORIDE
     Indication: Lung disorder
     Dosage: UNK
     Route: 042
     Dates: start: 20220118, end: 20220119
  6. SUFENTANIL [Suspect]
     Active Substance: SUFENTANIL
     Indication: Sedation
     Dosage: UNK
     Route: 042
     Dates: start: 20220113
  7. MIDAZOLAM HYDROCHLORIDE [Suspect]
     Active Substance: MIDAZOLAM HYDROCHLORIDE
     Indication: Sedation
     Dosage: UNK
     Route: 042
     Dates: start: 20220113
  8. CORDARONE [Suspect]
     Active Substance: AMIODARONE HYDROCHLORIDE
     Indication: Arrhythmia
     Dosage: UNK
     Route: 042
     Dates: start: 20220123
  9. CEFOTAXIME [Suspect]
     Active Substance: CEFOTAXIME SODIUM
     Indication: Lung disorder
     Dosage: UNK
     Dates: start: 20220119

REACTIONS (5)
  - COVID-19 pneumonia [Fatal]
  - Pulmonary embolism [Fatal]
  - Respiratory arrest [Fatal]
  - Cardiac arrest [Fatal]
  - Rash maculo-papular [Not Recovered/Not Resolved]

NARRATIVE: CASE EVENT DATE: 20220101
